FAERS Safety Report 8399305-1 (Version None)
Quarter: 2012Q2

REPORT INFORMATION
  Report Type: 
  Country: None (occurrence: None)
  Receive Date: 20120531
  Receipt Date: 20120519
  Transmission Date: 20120825
  Serious: Yes (Death)
  Sender: FDA-Public Use
  Company Number: US-JNJFOC-20120520135

PATIENT

DRUGS (2)
  1. TYLENOL PM [Suspect]
     Indication: INTENTIONAL DRUG MISUSE
     Route: 065
  2. HEROIN [Suspect]
     Indication: DRUG ABUSE
     Route: 065

REACTIONS (2)
  - SUBSTANCE ABUSE [None]
  - MULTIPLE DRUG OVERDOSE [None]
